FAERS Safety Report 22251493 (Version 1)
Quarter: 2023Q2

REPORT INFORMATION
  Report Type: Spontaneous
  Country: US (occurrence: US)
  Receive Date: 20230425
  Receipt Date: 20230425
  Transmission Date: 20230722
  Serious: Yes (Other)
  Sender: FDA-Public Use
  Company Number: US-002147023-NVSC2023US092835

PATIENT
  Sex: Male
  Weight: 113 kg

DRUGS (8)
  1. METHOTREXATE [Suspect]
     Active Substance: METHOTREXATE
     Indication: Product used for unknown indication
     Dosage: 25 MG, QW (10 TABLET, TOOK 5 TABLET IN THE MORNING AND 5 TABLET IN THE EV
     Route: 048
  2. PREDNISONE [Suspect]
     Active Substance: PREDNISONE
     Indication: Product used for unknown indication
     Dosage: 2 DOSAGE FORM, QD (2 TABLET DAILY FOR 2 WEEKS
     Route: 048
  3. COSENTYX [Suspect]
     Active Substance: SECUKINUMAB
     Indication: Product used for unknown indication
     Dosage: 150 MG, QW
     Route: 058
  4. COSENTYX [Suspect]
     Active Substance: SECUKINUMAB
     Dosage: 5 DOSAGE FORM, (ONCE EVERY 3 MONTH)
     Route: 058
  5. TRIAMCINOLONE [Suspect]
     Active Substance: TRIAMCINOLONE
     Indication: Product used for unknown indication
     Dosage: UNK, BID, (1 APPLICATION, APPLY TO ALL AFFECTED AREA)
     Route: 061
  6. ENBREL [Suspect]
     Active Substance: ETANERCEPT
     Indication: Product used for unknown indication
     Route: 065
  7. FOLIC ACID [Suspect]
     Active Substance: FOLIC ACID
     Indication: Product used for unknown indication
     Dosage: UNK, QD
     Route: 048
  8. HUMIRA [Suspect]
     Active Substance: ADALIMUMAB
     Indication: Product used for unknown indication
     Dosage: UNK
     Route: 065

REACTIONS (16)
  - Psoriatic arthropathy [Unknown]
  - Substance dependence [Unknown]
  - Psoriasis [Not Recovered/Not Resolved]
  - Pain in extremity [Not Recovered/Not Resolved]
  - Tendon pain [Not Recovered/Not Resolved]
  - Dermatitis psoriasiform [Recovering/Resolving]
  - Musculoskeletal stiffness [Unknown]
  - Joint warmth [Unknown]
  - Palpitations [Not Recovered/Not Resolved]
  - Skin lesion [Unknown]
  - Injection site rash [Unknown]
  - Central obesity [Unknown]
  - Arthralgia [Recovering/Resolving]
  - Rash [Unknown]
  - Fatigue [Unknown]
  - Peripheral swelling [Unknown]
